FAERS Safety Report 4650871-9 (Version None)
Quarter: 2005Q2

REPORT INFORMATION
  Report Type: 
  Country: None (occurrence: None)
  Receive Date: 20050503
  Receipt Date: 20050419
  Transmission Date: 20051028
  Serious: Yes (Hospitalization, Other)
  Sender: FDA-Public Use
  Company Number: GB-JNJFOC-20050404381

PATIENT
  Sex: Male
  Weight: 89 kg

DRUGS (7)
  1. REMICADE [Suspect]
     Indication: RHEUMATOID ARTHRITIS
     Route: 042
  2. METHOTREXATE [Concomitant]
  3. PREDNISOLONE [Concomitant]
  4. FOLIC ACID [Concomitant]
  5. NAPRATEC [Concomitant]
  6. NAPRATEC [Concomitant]
  7. ALENDRONATE SODIUM [Concomitant]

REACTIONS (2)
  - HYPERSENSITIVITY [None]
  - UNEVALUABLE EVENT [None]
